FAERS Safety Report 5641989-2 (Version None)
Quarter: 2008Q1

REPORT INFORMATION
  Report Type: 
  Country: None (occurrence: None)
  Receive Date: 20080227
  Receipt Date: 20080215
  Transmission Date: 20080703
  Serious: Yes (Other)
  Sender: FDA-Public Use
  Company Number: FR-PFIZER INC-2008015320

PATIENT
  Sex: Female

DRUGS (2)
  1. LYRICA [Suspect]
  2. DOSTINEX [Suspect]

REACTIONS (1)
  - SYNCOPE VASOVAGAL [None]
